FAERS Safety Report 15157916 (Version 1)
Quarter: 2018Q3

REPORT INFORMATION
  Report Type: Spontaneous
  Country: CA (occurrence: CA)
  Receive Date: 20180718
  Receipt Date: 20180718
  Transmission Date: 20181010
  Serious: Yes (Other)
  Sender: FDA-Public Use
  Company Number: CA-REGENERON PHARMACEUTICALS, INC.-2018-16975

PATIENT

DRUGS (2)
  1. EYLEA [Suspect]
     Active Substance: AFLIBERCEPT
     Indication: NEOVASCULAR AGE-RELATED MACULAR DEGENERATION
     Dosage: UNK, ONCE
  2. EYLEA [Suspect]
     Active Substance: AFLIBERCEPT
     Dosage: 1 DF, ONCE. LAST DOSE PRIOR THE EVENT
     Dates: start: 20171117, end: 20171117

REACTIONS (8)
  - Eye inflammation [Recovered/Resolved]
  - Inadequate aseptic technique in use of product [Unknown]
  - Wrong technique in product usage process [Unknown]
  - Anterior chamber cell [Unknown]
  - Corneal oedema [Unknown]
  - Intraocular pressure decreased [Unknown]
  - Visual acuity reduced [Unknown]
  - Blindness transient [Unknown]

NARRATIVE: CASE EVENT DATE: 20171121
